FAERS Safety Report 4648145-5 (Version None)
Quarter: 2005Q2

REPORT INFORMATION
  Report Type: 
  Country: None (occurrence: None)
  Receive Date: 20050331
  Receipt Date: 20041208
  Transmission Date: 20051028
  Serious: Yes (Hospitalization)
  Sender: FDA-Public Use
  Company Number: 04P-163-0282801

PATIENT
  Age: 77 Year
  Sex: Male
  Weight: 61.2356 kg

DRUGS (2)
  1. HUMIRA [Suspect]
     Indication: RHEUMATOID ARTHRITIS
     Dosage: 40 MG, 1 IN 1 M, SUBCUTANEOUS
     Route: 058
     Dates: start: 20040101, end: 20040601
  2. ROFECOXIB [Concomitant]

REACTIONS (2)
  - GASTROINTESTINAL INFECTION [None]
  - PNEUMONIA [None]
